FAERS Safety Report 10077265 (Version 2)
Quarter: 2014Q2

REPORT INFORMATION
  Report Type: Spontaneous
  Country: US (occurrence: US)
  Receive Date: 20140414
  Receipt Date: 20140414
  Transmission Date: 20141212
  Serious: No
  Sender: FDA-Public Use
  Company Number: US-BANPHARM-20131181

PATIENT
  Age: 79 Year
  Sex: Male
  Weight: 70.31 kg

DRUGS (6)
  1. ALEVE LIQUID GELS 220 MG [Suspect]
     Indication: ARTHRITIS
     Dosage: 1 DF, QD,
     Route: 048
     Dates: start: 201304, end: 201304
  2. ALEVE TABLETS [Suspect]
     Indication: ARTHRITIS
     Dosage: 2 DF, QD,
     Route: 048
     Dates: start: 2012
  3. CLOPIDOGREL 35 MG [Concomitant]
  4. CENTRUM SILVER MEN+50 [Concomitant]
  5. ROSUVASTATIN CA 40 MG [Concomitant]
  6. INHALERS FOR ASTHMA [Concomitant]
     Indication: ASTHMA

REACTIONS (3)
  - Throat irritation [Recovered/Resolved]
  - Vomiting [Recovered/Resolved]
  - Foreign body [Recovered/Resolved]
